FAERS Safety Report 5593677-9 (Version None)
Quarter: 2007Q4

REPORT INFORMATION
  Report Type: 
  Country: None (occurrence: None)
  Receive Date: 20071218
  Receipt Date: 20070122
  Transmission Date: 20080405
  Serious: Yes (Other)
  Sender: FDA-Public Use
  Company Number: 2007006060

PATIENT
  Age: 58 Year
  Sex: Male
  Weight: 83.9 kg

DRUGS (2)
  1. BEXTRA [Suspect]
     Indication: NECK PAIN
     Dosage: 40 MG (20 MG, 2 IN 1 D)
     Dates: start: 20031213, end: 20040517
  2. BEXTRA [Suspect]
     Indication: PAIN IN EXTREMITY
     Dosage: 40 MG (20 MG, 2 IN 1 D)
     Dates: start: 20031213, end: 20040517

REACTIONS (1)
  - MYOCARDIAL INFARCTION [None]
